FAERS Safety Report 18985058 (Version 1)
Quarter: 2021Q1

REPORT INFORMATION
  Report Type: Spontaneous
  Country: NZ (occurrence: NZ)
  Receive Date: 20210309
  Receipt Date: 20210309
  Transmission Date: 20210420
  Serious: Yes (Other)
  Sender: FDA-Public Use
  Company Number: NZ-SA-2021SA078263

PATIENT
  Age: 40 Year
  Sex: Male

DRUGS (3)
  1. CLINDAMYCIN. [Suspect]
     Active Substance: CLINDAMYCIN
     Route: 048
  2. RIFAMPICIN [Suspect]
     Active Substance: RIFAMPIN
  3. ALLOPURINOL. [Concomitant]
     Active Substance: ALLOPURINOL
     Route: 048

REACTIONS (3)
  - Rectal haemorrhage [Unknown]
  - Seizure [Unknown]
  - Diarrhoea [Unknown]
